FAERS Safety Report 6766848-3 (Version None)
Quarter: 2010Q2

REPORT INFORMATION
  Report Type: 
  Country: None (occurrence: None)
  Receive Date: 20100611
  Receipt Date: 20100531
  Transmission Date: 20101027
  Serious: Yes (Hospitalization)
  Sender: FDA-Public Use
  Company Number: TW-WATSON-2010-07655

PATIENT
  Age: 66 Year
  Sex: Female

DRUGS (1)
  1. GABAPENTIN [Suspect]
     Indication: URAEMIC PRURITUS
     Dosage: 300 MG, 3 TIMES A WEEK

REACTIONS (2)
  - DYSARTHRIA [None]
  - PARAPLEGIA [None]
